FAERS Safety Report 13032088 (Version 1)
Quarter: 2016Q4

REPORT INFORMATION
  Report Type: Spontaneous
  Country: IT (occurrence: IT)
  Receive Date: 20161215
  Receipt Date: 20161215
  Transmission Date: 20170207
  Serious: Yes (Death, Other)
  Sender: FDA-Public Use
  Company Number: IT-ALLERGAN-1680384US

PATIENT
  Age: 63 Year
  Sex: Male
  Weight: 52 kg

DRUGS (11)
  1. LEVOTHYROXINE. [Concomitant]
     Active Substance: LEVOTHYROXINE
     Indication: HYPOTHYROIDISM
     Dosage: 50 ?G, QD
     Route: 048
     Dates: end: 20160927
  2. PANTOPRAZOLE [Concomitant]
     Active Substance: PANTOPRAZOLE SODIUM
     Indication: GASTROOESOPHAGEAL REFLUX DISEASE
     Dosage: 40 MG, QD
     Route: 048
     Dates: start: 20160711, end: 20160927
  3. CEFTAZIDIME;AVIBACTAM - BP [Suspect]
     Active Substance: AVIBACTAM SODIUM\CEFTAZIDIME
     Indication: PRODUCT USED FOR UNKNOWN INDICATION
     Dosage: 2 G
     Route: 042
     Dates: start: 20160926, end: 20160928
  4. ERTAPENEM [Concomitant]
     Active Substance: ERTAPENEM
     Indication: SEPSIS
     Dosage: 1 G
     Route: 042
     Dates: start: 20160917, end: 20160928
  5. TIGECYCLINE. [Concomitant]
     Active Substance: TIGECYCLINE
     Indication: PRODUCT USED FOR UNKNOWN INDICATION
     Dosage: 200 MG
     Route: 042
     Dates: start: 20160917, end: 20160928
  6. SODIUM BICARBONATE. [Concomitant]
     Active Substance: SODIUM BICARBONATE
     Indication: RENAL FAILURE
     Dosage: 1000 MG
     Route: 048
     Dates: start: 20160711, end: 20160927
  7. EPOETIN ALFA [Concomitant]
     Active Substance: ERYTHROPOIETIN
     Indication: RENAL FAILURE
     Dosage: 500 UNITS, QD
     Route: 042
     Dates: start: 20160921, end: 20160927
  8. FUROSEMIDE. [Concomitant]
     Active Substance: FUROSEMIDE
     Indication: RENAL FAILURE
     Dosage: 500 MG
     Route: 042
     Dates: start: 20160908, end: 20160927
  9. MORPHINE [Concomitant]
     Active Substance: MORPHINE
     Indication: PAIN
     Dosage: 10 MG, QD
     Route: 048
     Dates: start: 20160926, end: 20160927
  10. URSODEOXYCHOLIC ACID [Concomitant]
     Active Substance: URSODIOL
     Indication: CHOLELITHIASIS
     Dosage: 300 MG, QD
     Route: 048
     Dates: end: 20160927
  11. MEROPENEM. [Concomitant]
     Active Substance: MEROPENEM
     Indication: SEPSIS
     Dosage: 2G
     Route: 042
     Dates: start: 20160917, end: 20160928

REACTIONS (3)
  - Klebsiella sepsis [Fatal]
  - Multiple organ dysfunction syndrome [Fatal]
  - Condition aggravated [Fatal]

NARRATIVE: CASE EVENT DATE: 20160928
